FAERS Safety Report 9365847 (Version 1)
Quarter: 2013Q2

REPORT INFORMATION
  Report Type: Report from Study
  Country: US (occurrence: US)
  Receive Date: 20130625
  Receipt Date: 20130625
  Transmission Date: 20140414
  Serious: Yes (Hospitalization)
  Sender: FDA-Public Use
  Company Number: PHEH2013US013467

PATIENT
  Age: 34 Year
  Sex: Female

DRUGS (2)
  1. AFINITOR [Suspect]
     Indication: CERVIX CARCINOMA
     Route: 048
     Dates: start: 20130610
  2. AFINITOR [Suspect]
     Indication: OFF LABEL USE

REACTIONS (3)
  - Intestinal obstruction [Unknown]
  - Abdominal pain [Unknown]
  - Nausea [Unknown]
